FAERS Safety Report 5301123-5 (Version None)
Quarter: 2007Q2

REPORT INFORMATION
  Report Type: 
  Country: None (occurrence: None)
  Receive Date: 20070418
  Receipt Date: 20070406
  Transmission Date: 20071010
  Serious: Yes (Other)
  Sender: FDA-Public Use
  Company Number: FRWYE384206APR07

PATIENT
  Age: 35 Year
  Sex: Male

DRUGS (2)
  1. ENBREL [Suspect]
     Indication: ANKYLOSING SPONDYLITIS
     Route: 058
     Dates: start: 20051101, end: 20070101
  2. ENBREL [Suspect]
     Route: 058
     Dates: start: 20070101

REACTIONS (2)
  - CONDITION AGGRAVATED [None]
  - IRIDOCYCLITIS [None]
